FAERS Safety Report 20517782 (Version 1)
Quarter: 2022Q1

REPORT INFORMATION
  Report Type: Other
  Country: BE (occurrence: None)
  Receive Date: 20220225
  Receipt Date: 20220225
  Transmission Date: 20220423
  Serious: Yes (Death)
  Sender: FDA-Public Use
  Company Number: BE-ASTELLAS-2022US003748

PATIENT
  Sex: Female

DRUGS (2)
  1. MYCOPHENOLATE MOFETIL [Suspect]
     Active Substance: MYCOPHENOLATE MOFETIL
     Indication: Lung transplant
     Dosage: UNK UNK, UNKNOWN FREQ.
     Route: 065
     Dates: end: 2018
  2. TACROLIMUS [Suspect]
     Active Substance: TACROLIMUS
     Indication: Lung transplant
     Dosage: UNK UNK, UNKNOWN FREQ.
     Route: 065
     Dates: end: 201808

REACTIONS (10)
  - Metastases to ovary [Fatal]
  - Haemangioma [Fatal]
  - Metastases to thyroid [Fatal]
  - Metastases to kidney [Fatal]
  - Neoplasm progression [Fatal]
  - Metastases to bone [Fatal]
  - Metastases to lymph nodes [Fatal]
  - Metastases to central nervous system [Fatal]
  - Lung neoplasm [Fatal]
  - Haemangioma of liver [Fatal]

NARRATIVE: CASE EVENT DATE: 20170401
